FAERS Safety Report 16691532 (Version 2)
Quarter: 2019Q3

REPORT INFORMATION
  Report Type: Report from Study
  Country: US (occurrence: US)
  Receive Date: 20190812
  Receipt Date: 20190821
  Transmission Date: 20191004
  Serious: Yes (Hospitalization, Other)
  Sender: FDA-Public Use
  Company Number: US-TEVA-2019-US-1090519

PATIENT
  Sex: Female

DRUGS (3)
  1. NALOXONE [Concomitant]
     Active Substance: NALOXONE
     Route: 065
  2. OXYCODONE [Suspect]
     Active Substance: OXYCODONE
     Indication: ABDOMINAL PAIN
     Route: 065
  3. CYCLOBENZAPRINE. [Concomitant]
     Active Substance: CYCLOBENZAPRINE
     Indication: ABDOMINAL PAIN
     Route: 065

REACTIONS (5)
  - Renal tubular necrosis [Unknown]
  - Rhabdomyolysis [Unknown]
  - Shock [Unknown]
  - Respiratory depression [Unknown]
  - Hypoxia [Unknown]
